FAERS Safety Report 6092373-1 (Version None)
Quarter: 2009Q1

REPORT INFORMATION
  Report Type: 
  Country: None (occurrence: None)
  Receive Date: 20090223
  Receipt Date: 20090223
  Transmission Date: 20090719
  Serious: No
  Sender: FDA-Public Use
  Company Number: None

PATIENT
  Sex: Female
  Weight: 81.6475 kg

DRUGS (2)
  1. HYDROCHLOROTHIAZIDE [Suspect]
     Indication: HYPERTENSION
     Dosage: 25MG 1/2 TAB DAILY PO
     Route: 048
     Dates: start: 20080521, end: 20090109
  2. LISINOPRIL [Suspect]
     Dosage: 20MG AND 40MG 1 DAILY PO
     Route: 048
     Dates: start: 20080521, end: 20090209

REACTIONS (2)
  - HYPERSENSITIVITY [None]
  - THERAPEUTIC RESPONSE UNEXPECTED WITH DRUG SUBSTITUTION [None]
